FAERS Safety Report 13381118 (Version 1)
Quarter: 2017Q1

REPORT INFORMATION
  Report Type: Spontaneous
  Country: US (occurrence: US)
  Receive Date: 20170328
  Receipt Date: 20170328
  Transmission Date: 20170429
  Serious: No
  Sender: FDA-Public Use
  Company Number: None

PATIENT
  Age: 69 Year
  Sex: Female
  Weight: 64.41 kg

DRUGS (5)
  1. ONE-A-DAY WOMEN^S VITAMIN [Concomitant]
  2. PSYLLIUM FIBER KONSYL 1 TEASPOON [Concomitant]
     Active Substance: PSYLLIUM HUSK
  3. TOPIRAMATE. [Concomitant]
     Active Substance: TOPIRAMATE
  4. RIZATRIPTAN. [Suspect]
     Active Substance: RIZATRIPTAN
     Indication: MIGRAINE
     Dosage: 30 AS MED FOR MIGRAINE ON TONGUE
     Dates: start: 20170202, end: 20170202
  5. CALCIUM [Concomitant]
     Active Substance: CALCIUM

REACTIONS (4)
  - Rash erythematous [None]
  - Product substitution issue [None]
  - Migraine [None]
  - Pain [None]

NARRATIVE: CASE EVENT DATE: 20170304
